FAERS Safety Report 19182060 (Version 1)
Quarter: 2021Q2

REPORT INFORMATION
  Report Type: Spontaneous
  Country: US (occurrence: US)
  Receive Date: 20210426
  Receipt Date: 20210426
  Transmission Date: 20210717
  Serious: Yes (Other)
  Sender: FDA-Public Use
  Company Number: US-PURDUE-USA-2021-0249971

PATIENT
  Age: 4 Year
  Sex: Male

DRUGS (1)
  1. NON?PMN METHYLPHENIDATE HYDROCHLORIDE [Suspect]
     Active Substance: METHYLPHENIDATE HYDROCHLORIDE
     Indication: ATTENTION DEFICIT HYPERACTIVITY DISORDER
     Dosage: 36 MG, SINGLE
     Route: 065

REACTIONS (6)
  - Agitation [Recovered/Resolved]
  - Vomiting [Recovered/Resolved]
  - Tachycardia [Recovered/Resolved]
  - Psychomotor hyperactivity [Recovered/Resolved]
  - Rash [Recovered/Resolved]
  - Dystonia [Recovered/Resolved]
